FAERS Safety Report 24628869 (Version 1)
Quarter: 2024Q4

REPORT INFORMATION
  Report Type: Spontaneous
  Country: GB (occurrence: GB)
  Receive Date: 20241118
  Receipt Date: 20241118
  Transmission Date: 20250115
  Serious: Yes (Death)
  Sender: JUBILANT
  Company Number: GB-JUBILANT CADISTA PHARMACEUTICALS-2024GB001628

PATIENT

DRUGS (1)
  1. MEMANTINE HYDROCHLORIDE [Suspect]
     Active Substance: MEMANTINE HYDROCHLORIDE
     Indication: Motor neurone disease
     Dosage: 20 MG, ONCE PER DAY
     Route: 048

REACTIONS (1)
  - Urinary tract infection [Fatal]
